FAERS Safety Report 5701543-0 (Version None)
Quarter: 2008Q2

REPORT INFORMATION
  Report Type: 
  Country: None (occurrence: None)
  Receive Date: 20080408
  Receipt Date: 20080327
  Transmission Date: 20081010
  Serious: Yes (Hospitalization)
  Sender: FDA-Public Use
  Company Number: 2008BI004075

PATIENT
  Age: 51 Year
  Sex: Female

DRUGS (1)
  1. AVONEX [Suspect]
     Indication: MULTIPLE SCLEROSIS
     Dosage: 30 UG; QW; IM
     Route: 030
     Dates: start: 20071217

REACTIONS (8)
  - BLOOD POTASSIUM DECREASED [None]
  - DEHYDRATION [None]
  - FALL [None]
  - HAEMOGLOBIN DECREASED [None]
  - HEAD INJURY [None]
  - LOSS OF CONSCIOUSNESS [None]
  - SKIN BURNING SENSATION [None]
  - SKIN IRRITATION [None]
